FAERS Safety Report 5258609-1 (Version None)
Quarter: 2007Q1

REPORT INFORMATION
  Report Type: 
  Country: None (occurrence: None)
  Receive Date: 20070305
  Receipt Date: 20070216
  Transmission Date: 20070707
  Serious: Yes (Hospitalization)
  Sender: FDA-Public Use
  Company Number: DSA_29445_2007

PATIENT
  Age: 50 Year

DRUGS (7)
  1. LORAZEPAM [Suspect]
     Indication: DEPRESSION
     Dosage: VAR BID SL
     Route: 060
     Dates: end: 20060824
  2. CLOZAPINE [Suspect]
     Indication: ANXIETY
     Dosage: VAR BID PO
     Route: 048
     Dates: start: 20060824
  3. CLOZAPINE [Suspect]
     Indication: DELUSION
     Dosage: VAR BID PO
     Route: 048
     Dates: start: 20060824
  4. CLOZAPINE [Suspect]
     Indication: PARANOIA
     Dosage: VAR BID PO
     Route: 048
     Dates: start: 20060824
  5. CHLORPROMAZINE HYDROCHLORIDE [Suspect]
     Indication: ANXIETY
     Dosage: VAR Q DAY PO
     Route: 048
     Dates: start: 20060801, end: 20060824
  6. CHLORPROMAZINE HYDROCHLORIDE [Suspect]
     Indication: DEPRESSION
     Dosage: VAR Q DAY PO
     Route: 048
     Dates: start: 20060801, end: 20060824
  7. NORVASC [Concomitant]

REACTIONS (4)
  - ELECTROENCEPHALOGRAM ABNORMAL [None]
  - HEART RATE INCREASED [None]
  - HEMIPARESIS [None]
  - SOPOR [None]
